FAERS Safety Report 10391230 (Version 2)
Quarter: 2015Q1

REPORT INFORMATION
  Report Type: Spontaneous
  Country: US (occurrence: US)
  Receive Date: 20140818
  Receipt Date: 20150125
  Transmission Date: 20150720
  Serious: No
  Sender: FDA-Public Use
  Company Number: US-ASTRAZENECA-2013SE61990

PATIENT
  Age: 61 Year
  Sex: Female
  Weight: 86.6 kg

DRUGS (21)
  1. CALCIUM [Concomitant]
     Active Substance: CALCIUM
     Dosage: 2000 BID
  2. CHOLESTEROL MEDICATIONS [Concomitant]
     Active Substance: UNSPECIFIED INGREDIENT
  3. MULTIVITAMIN [Concomitant]
     Active Substance: VITAMINS
  4. ADVAIR HFA [Concomitant]
     Active Substance: FLUTICASONE PROPIONATE\SALMETEROL XINAFOATE
     Indication: ASTHMA
  5. SIMVASTATIN. [Suspect]
     Active Substance: SIMVASTATIN
     Indication: BLOOD CHOLESTEROL ABNORMAL
     Route: 065
  6. TRAVASTAN [Concomitant]
     Indication: GLAUCOMA
     Dosage: 0.004% ONE DROP IN EACH EYE AT HS
  7. GLUCOSAMINE [Concomitant]
     Active Substance: GLUCOSAMINE
  8. VITAMIN D [Concomitant]
     Active Substance: CHOLECALCIFEROL
  9. SYMBICORT [Suspect]
     Active Substance: BUDESONIDE\FORMOTEROL FUMARATE DIHYDRATE
     Indication: ASTHMA
     Dosage: 160/4.5 MCGS, TWO PUFFS BID
     Route: 055
     Dates: end: 201302
  10. OMEPRAZOLE. [Suspect]
     Active Substance: OMEPRAZOLE
     Indication: GASTROOESOPHAGEAL REFLUX DISEASE
     Route: 048
  11. FISH OIL [Concomitant]
     Active Substance: FISH OIL
  12. PROAIR HFA [Concomitant]
     Active Substance: ALBUTEROL SULFATE
     Dosage: PRN
  13. LEVOSYNTHROID SODIUM [Concomitant]
     Indication: THYROID DISORDER
  14. CITALOPRAM [Concomitant]
     Active Substance: CITALOPRAM HYDROBROMIDE
     Dates: start: 1999
  15. ALPRAZOLAM. [Concomitant]
     Active Substance: ALPRAZOLAM
     Indication: ANXIETY
     Dates: start: 1999
  16. BLOOD PRESSURE MEDICATIONS [Concomitant]
     Active Substance: UNSPECIFIED INGREDIENT
  17. DULERA [Concomitant]
     Active Substance: FORMOTEROL FUMARATE DIHYDRATE\MOMETASONE FUROATE
     Indication: ASTHMA
     Dates: start: 201301
  18. BRIMONIDINE [Concomitant]
     Active Substance: BRIMONIDINE\BRIMONIDINE TARTRATE
     Indication: GLAUCOMA
  19. AMLODIPINE BYSELATE [Concomitant]
  20. ALLEGRA [Concomitant]
     Active Substance: FEXOFENADINE HYDROCHLORIDE
  21. HYDROCHLOROTHIAZIDE. [Concomitant]
     Active Substance: HYDROCHLOROTHIAZIDE
     Dates: start: 2009

REACTIONS (5)
  - Drug dose omission [Unknown]
  - Weight increased [Not Recovered/Not Resolved]
  - Dyspnoea [Unknown]
  - Somnolence [Unknown]
  - Intentional product misuse [Unknown]
